FAERS Safety Report 8275382-3 (Version None)
Quarter: 2012Q2

REPORT INFORMATION
  Report Type: 
  Country: None (occurrence: None)
  Receive Date: 20120411
  Receipt Date: 20120409
  Transmission Date: 20120825
  Serious: Yes (Other)
  Sender: FDA-Public Use
  Company Number: US-MERCK-1203USA01016

PATIENT
  Age: 60 Year
  Sex: Female
  Weight: 95 kg

DRUGS (14)
  1. TAXOL [Concomitant]
     Indication: DEPRESSION
     Route: 065
  2. PENTASA [Suspect]
     Route: 048
  3. PENTASA [Suspect]
     Indication: CROHN'S DISEASE
     Route: 048
  4. OXYCODONE [Concomitant]
     Indication: NEURALGIA
     Route: 048
  5. MEDROL [Suspect]
     Route: 048
     Dates: start: 20101101, end: 20120212
  6. ELAVIL [Suspect]
     Indication: MUSCLE SPASMS
     Route: 048
  7. MEDROL [Suspect]
     Route: 048
     Dates: start: 20120213
  8. ELAVIL [Suspect]
     Route: 048
  9. LYRICA [Suspect]
     Route: 048
     Dates: start: 20050101, end: 20100701
  10. MEDROL [Suspect]
     Indication: INFLAMMATORY PAIN
     Route: 048
     Dates: start: 20100101, end: 20101101
  11. LYRICA [Suspect]
     Indication: NEURALGIA
     Route: 048
     Dates: start: 20100701
  12. SINGULAIR [Suspect]
     Indication: ASTHMA
     Route: 048
  13. PROZAC [Concomitant]
     Indication: DEPRESSION
     Route: 048
  14. OMEPRAZOLE [Concomitant]
     Indication: GASTROOESOPHAGEAL REFLUX DISEASE
     Route: 065

REACTIONS (13)
  - AGGRESSION [None]
  - IRRITABILITY [None]
  - HYPERSENSITIVITY [None]
  - WEIGHT INCREASED [None]
  - DYSPNOEA [None]
  - AFFECTIVE DISORDER [None]
  - ECCHYMOSIS [None]
  - DRUG INTERACTION [None]
  - AGITATION [None]
  - DRY MOUTH [None]
  - PAIN IN EXTREMITY [None]
  - OEDEMA PERIPHERAL [None]
  - ERYTHEMA [None]
